FAERS Safety Report 9580277 (Version 1)
Quarter: 2013Q4

REPORT INFORMATION
  Report Type: Report from Study
  Country: US (occurrence: US)
  Receive Date: 20131002
  Receipt Date: 20131002
  Transmission Date: 20140711
  Serious: Yes (Hospitalization)
  Sender: FDA-Public Use
  Company Number: US-NAPPMUNDI-USA-2013-0106857

PATIENT
  Age: 58 Year
  Sex: Female

DRUGS (3)
  1. DILAUDID TABLET [Suspect]
     Indication: PRODUCT USED FOR UNKNOWN INDICATION
     Dosage: UNKNOWN
  2. COPAXONE [Suspect]
     Indication: MULTIPLE SCLEROSIS
     Dosage: UNK
     Dates: start: 20120910
  3. ALEVE [Suspect]
     Indication: SLEEP DISORDER
     Dosage: UNKNOWN

REACTIONS (2)
  - Overdose [Unknown]
  - Multiple sclerosis relapse [Unknown]
